FAERS Safety Report 23637236 (Version 2)
Quarter: 2024Q1

REPORT INFORMATION
  Report Type: Report from Study
  Country: US (occurrence: US)
  Receive Date: 20240315
  Receipt Date: 20240321
  Transmission Date: 20240410
  Serious: Yes (Hospitalization)
  Sender: FDA-Public Use
  Company Number: US-OTSUKA-2024_006828

PATIENT
  Sex: Female
  Weight: 61.69 kg

DRUGS (1)
  1. CEDAZURIDINE\DECITABINE [Suspect]
     Active Substance: CEDAZURIDINE\DECITABINE
     Indication: Product used for unknown indication
     Dosage: 1 DF (35 MG DECITABINE AND 100 MG CEDAZURIDINE), QD (FOR 5 DAYS THAN OFF FOR 23 DAYS)
     Route: 065

REACTIONS (4)
  - Full blood count abnormal [Unknown]
  - General physical health deterioration [Unknown]
  - White blood cell count decreased [Unknown]
  - Therapy interrupted [Unknown]
